FAERS Safety Report 6121339-8 (Version None)
Quarter: 2009Q1

REPORT INFORMATION
  Report Type: 
  Country: None (occurrence: None)
  Receive Date: 20090313
  Receipt Date: 20090225
  Transmission Date: 20090719
  Serious: Yes (Hospitalization)
  Sender: FDA-Public Use
  Company Number: 8039455

PATIENT
  Age: 33 Year
  Sex: Male
  Weight: 79 kg

DRUGS (6)
  1. CIMZIA [Suspect]
     Indication: CROHN'S DISEASE
     Dosage: 400 MG 1/2W SC
     Route: 058
     Dates: start: 20081016, end: 20081030
  2. CIMZIA [Suspect]
     Indication: CROHN'S DISEASE
     Dosage: 400 MG SC
     Route: 058
     Dates: start: 20081106, end: 20081201
  3. PREDNISONE [Concomitant]
  4. IMURAN [Concomitant]
  5. PROBIOTICA [Concomitant]
  6. IMODIUM [Concomitant]

REACTIONS (4)
  - DEHYDRATION [None]
  - HEADACHE [None]
  - PYREXIA [None]
  - RASH PUSTULAR [None]
